FAERS Safety Report 6704187-7 (Version None)
Quarter: 2010Q2

REPORT INFORMATION
  Report Type: 
  Country: None (occurrence: None)
  Receive Date: 20100430
  Receipt Date: 20100421
  Transmission Date: 20101027
  Serious: Yes (Disabling)
  Sender: FDA-Public Use
  Company Number: US-JNJFOC-20100406333

PATIENT
  Sex: Male
  Weight: 79.38 kg

DRUGS (13)
  1. DURAGESIC-100 [Suspect]
     Indication: PAIN
     Route: 062
  2. DURAGESIC-100 [Suspect]
     Dosage: 1 EVERY 48 TO 72 HOURS AS NEEDED
     Route: 062
  3. DURAGESIC-100 [Suspect]
     Dosage: 1 EVERY 48-72 HOURS AS NEEDED
     Route: 062
  4. AMARYL [Concomitant]
     Indication: DIABETES MELLITUS
     Route: 048
  5. ACTOS [Concomitant]
     Indication: DIABETES MELLITUS
     Route: 048
  6. METFORMIN [Concomitant]
     Indication: DIABETES MELLITUS
     Route: 048
  7. LYRICA [Concomitant]
     Indication: PAIN
     Dosage: 2 AS NEEDED
     Route: 048
  8. BENAZEPRIL HYDROCHLORIDE [Concomitant]
     Indication: DRUG USE FOR UNKNOWN INDICATION
     Route: 048
  9. ASPIRIN [Concomitant]
     Indication: CARDIAC DISORDER
     Route: 048
  10. NIACIN [Concomitant]
     Route: 048
  11. HYDROCODONE BITARTRATE [Concomitant]
     Indication: PAIN
     Dosage: AS NEEDED
     Route: 048
  12. CYMBALTA [Concomitant]
     Indication: PAIN
     Route: 048
  13. CREON [Concomitant]
     Dosage: 2 TO 3 A DAY
     Route: 048

REACTIONS (8)
  - CONDITION AGGRAVATED [None]
  - DISABILITY [None]
  - DRUG EFFECT DECREASED [None]
  - DRUG INEFFECTIVE [None]
  - INAPPROPRIATE SCHEDULE OF DRUG ADMINISTRATION [None]
  - NIGHT SWEATS [None]
  - TREMOR [None]
  - WRONG TECHNIQUE IN DRUG USAGE PROCESS [None]
